FAERS Safety Report 24167654 (Version 1)
Quarter: 2024Q3

REPORT INFORMATION
  Report Type: Spontaneous
  Country: US (occurrence: US)
  Receive Date: 20240802
  Receipt Date: 20240802
  Transmission Date: 20241017
  Serious: Yes (Other)
  Sender: PFIZER
  Company Number: US-SEATTLE GENETICS-2020SGN03836

PATIENT
  Age: 66 Year
  Sex: Female

DRUGS (3)
  1. TUKYSA [Suspect]
     Active Substance: TUCATINIB
     Dosage: 150 MG, 2X/DAY
     Route: 048
  2. TUKYSA [Suspect]
     Active Substance: TUCATINIB
     Dosage: 300 MG, 2X/DAY
     Dates: start: 20200826, end: 20201019
  3. TUKYSA [Suspect]
     Active Substance: TUCATINIB
     Dosage: 200 MG, 2X/DAY

REACTIONS (12)
  - Cataract [Unknown]
  - Bronchitis [Unknown]
  - Brain fog [Unknown]
  - Diarrhoea [Unknown]
  - Illness [Unknown]
  - Malaise [Unknown]
  - Memory impairment [Unknown]
  - Disturbance in attention [Unknown]
  - Visual impairment [Unknown]
  - Confusional state [Unknown]
  - Incorrect dose administered [Unknown]
  - Product dispensing error [Unknown]

NARRATIVE: CASE EVENT DATE: 20201224
